APPROVED DRUG PRODUCT: SYNAREL
Active Ingredient: NAFARELIN ACETATE
Strength: EQ 0.2MG BASE/SPRAY
Dosage Form/Route: SPRAY, METERED;NASAL
Application: N019886 | Product #001
Applicant: PFIZER INC
Approved: Feb 13, 1990 | RLD: Yes | RS: Yes | Type: RX